FAERS Safety Report 23661969 (Version 1)
Quarter: 2024Q1

REPORT INFORMATION
  Report Type: Spontaneous
  Country: US (occurrence: US)
  Receive Date: 20240322
  Receipt Date: 20240322
  Transmission Date: 20240410
  Serious: Yes (Disabling, Other)
  Sender: FDA-Public Use
  Company Number: US-REGENERON PHARMACEUTICALS, INC.-2024-036443

PATIENT
  Sex: Female

DRUGS (1)
  1. EYLEA HD [Suspect]
     Active Substance: AFLIBERCEPT
     Indication: Diabetic retinal oedema
     Dosage: 1 {DF}, ONCE, INTO RIGHT EYE, FORMULATION: HD, STRENGTH: 114.3MG/ML
     Dates: start: 20240110, end: 20240110

REACTIONS (2)
  - Blindness unilateral [Not Recovered/Not Resolved]
  - Bacterial endophthalmitis [Not Recovered/Not Resolved]

NARRATIVE: CASE EVENT DATE: 20240101
